FAERS Safety Report 12772776 (Version 1)
Quarter: 2016Q3

REPORT INFORMATION
  Report Type: Spontaneous
  Country: IT (occurrence: IT)
  Receive Date: 20160922
  Receipt Date: 20160922
  Transmission Date: 20161109
  Serious: Yes (Hospitalization, Other)
  Sender: FDA-Public Use
  Company Number: IT-ELI_LILLY_AND_COMPANY-IT201609005334

PATIENT
  Age: 55 Year
  Sex: Male

DRUGS (10)
  1. HUMALOG [Suspect]
     Active Substance: INSULIN LISPRO
     Dosage: UNK UNK, PRN
     Route: 058
     Dates: start: 20150714, end: 20160907
  2. TORVAST [Concomitant]
     Active Substance: ATORVASTATIN
     Dosage: UNK
     Route: 048
     Dates: start: 20150714, end: 20160907
  3. HUMALOG [Suspect]
     Active Substance: INSULIN LISPRO
     Indication: TYPE 1 DIABETES MELLITUS
     Dosage: 3 IU, AT BREAKFAST
     Route: 058
     Dates: start: 20150714, end: 20160907
  4. CARDIOASPIRINA [Concomitant]
     Active Substance: ASPIRIN
     Route: 048
  5. HUMALOG [Suspect]
     Active Substance: INSULIN LISPRO
     Dosage: 12 IU, AT LUNCH
     Route: 058
     Dates: start: 20150714, end: 20160907
  6. LANTUS [Suspect]
     Active Substance: INSULIN GLARGINE
     Indication: TYPE 1 DIABETES MELLITUS
     Dosage: 20 IU, EACH EVENING
     Route: 058
     Dates: start: 20150714, end: 20160907
  7. NORVASC [Concomitant]
     Active Substance: AMLODIPINE BESYLATE
     Dosage: UNK
     Route: 048
     Dates: start: 20150714, end: 20160907
  8. HUMALOG [Suspect]
     Active Substance: INSULIN LISPRO
     Dosage: 12 IU, AT DINNER
     Route: 058
     Dates: start: 20150714, end: 20160907
  9. ANTRA                              /00661201/ [Concomitant]
     Active Substance: OMEPRAZOLE
     Dosage: UNK
     Route: 048
     Dates: start: 20150714, end: 20160907
  10. KARVEZIDE [Concomitant]
     Active Substance: HYDROCHLOROTHIAZIDE\IRBESARTAN
     Indication: HYPERTENSION
     Dosage: 1 DF, UNK
     Route: 048
     Dates: start: 20160714, end: 20160907

REACTIONS (6)
  - Blood glucose increased [Unknown]
  - Blood urea increased [Unknown]
  - Hypoglycaemia [Recovering/Resolving]
  - Metabolic acidosis [Unknown]
  - Haemoglobin decreased [Unknown]
  - Blood creatinine increased [Unknown]

NARRATIVE: CASE EVENT DATE: 20160907
